FAERS Safety Report 4551729-6 (Version None)
Quarter: 2005Q1

REPORT INFORMATION
  Report Type: 
  Country: None (occurrence: None)
  Receive Date: 20050112
  Receipt Date: 20050110
  Transmission Date: 20050727
  Serious: Yes (Other)
  Sender: FDA-Public Use
  Company Number: 200413262BCC

PATIENT
  Sex: Female

DRUGS (6)
  1. OXYMETAZOLINE HCL [Suspect]
     Indication: RESPIRATORY DISORDER
     Dosage: NASAL
     Route: 045
  2. ALAVERT [Concomitant]
  3. MICROMOR [Concomitant]
  4. WELLBUTRIN [Concomitant]
  5. LEXAPRO [Concomitant]
  6. VITAMINS (NOS) [Concomitant]

REACTIONS (7)
  - DRUG DEPENDENCE [None]
  - MEDICATION ERROR [None]
  - NASAL CONGESTION [None]
  - PANIC REACTION [None]
  - REBOUND EFFECT [None]
  - RESPIRATORY DISORDER [None]
  - THERAPY NON-RESPONDER [None]
